FAERS Safety Report 8303055-7 (Version None)
Quarter: 2012Q2

REPORT INFORMATION
  Report Type: 
  Country: None (occurrence: None)
  Receive Date: 20120422
  Receipt Date: 20120412
  Transmission Date: 20120825
  Serious: Yes (Hospitalization, Other)
  Sender: FDA-Public Use
  Company Number: US-BAXTER-2012BAX003085

PATIENT
  Sex: Male
  Weight: 81.82 kg

DRUGS (11)
  1. AMLODIPINE BESYLATE [Concomitant]
     Route: 048
  2. RITUXAN [Suspect]
  3. NEXIUM [Concomitant]
     Route: 048
  4. LEVOXYL [Concomitant]
     Route: 048
  5. PENTOSTATIN [Suspect]
  6. CYANOCOBALAMIN [Concomitant]
  7. VALTREX [Concomitant]
     Route: 048
  8. CYTOXAN [Suspect]
     Route: 042
     Dates: start: 20081001, end: 20090301
  9. CLARINEX-D [Concomitant]
     Indication: CHRONIC SINUSITIS
     Route: 048
     Dates: end: 20120401
  10. VITAMIN B-12 [Concomitant]
     Route: 048
  11. CELEBREX [Concomitant]
     Route: 048

REACTIONS (4)
  - NEUROPATHY PERIPHERAL [None]
  - ARTHRALGIA [None]
  - PYREXIA [None]
  - JOINT SWELLING [None]
